FAERS Safety Report 6026322-9 (Version None)
Quarter: 2008Q4

REPORT INFORMATION
  Report Type: 
  Country: None (occurrence: None)
  Receive Date: 20081222
  Receipt Date: 20081117
  Transmission Date: 20090506
  Serious: No
  Sender: FDA-Public Use
  Company Number: US-WYE-H06868608

PATIENT
  Age: 47 Year
  Sex: Male
  Weight: 104.42 kg

DRUGS (4)
  1. PRISTIQ [Suspect]
     Indication: DEPRESSION
     Dosage: 50 MG 1X PER 1 DAY, ORAL
     Route: 048
     Dates: start: 20081101, end: 20081114
  2. NORCO [Concomitant]
  3. BENICAR [Concomitant]
  4. AMBIEN [Concomitant]

REACTIONS (1)
  - ERECTILE DYSFUNCTION [None]
